FAERS Safety Report 19799317 (Version 8)
Quarter: 2022Q1

REPORT INFORMATION
  Report Type: Spontaneous
  Country: PL (occurrence: PL)
  Receive Date: 20210907
  Receipt Date: 20220106
  Transmission Date: 20220424
  Serious: Yes (Disabling, Other)
  Sender: FDA-Public Use
  Company Number: PL-MYLANLABS-2021M1058176

PATIENT
  Age: 68 Year
  Sex: Female

DRUGS (21)
  1. DULOXETINE [Interacting]
     Active Substance: DULOXETINE
     Indication: Depression
     Dosage: 60 MILLIGRAM, QD
     Route: 065
  2. DULOXETINE [Interacting]
     Active Substance: DULOXETINE
     Indication: Antidepressant therapy
     Dosage: UNK
  3. METOPROLOL [Interacting]
     Active Substance: METOPROLOL
     Indication: Depression
     Dosage: 100 MILLIGRAM, QD
     Route: 065
  4. METOPROLOL [Interacting]
     Active Substance: METOPROLOL
     Indication: Palpitations
  5. ALPRAZOLAM [Interacting]
     Active Substance: ALPRAZOLAM
     Indication: Depression
     Dosage: 2 X 0.5MG
  6. ALPRAZOLAM [Interacting]
     Active Substance: ALPRAZOLAM
     Indication: Antidepressant therapy
     Dosage: 1 MILLIGRAM
  7. PREGABALIN [Interacting]
     Active Substance: PREGABALIN
     Indication: Pain
     Dosage: UNK
     Route: 065
  8. PREGABALIN [Interacting]
     Active Substance: PREGABALIN
     Dosage: UNK
     Route: 048
  9. GENTAMICIN [Suspect]
     Active Substance: GENTAMICIN
     Indication: Eye pain
     Dosage: UNK,EYE DROPS
     Route: 047
  10. BROMFENAC [Suspect]
     Active Substance: BROMFENAC SODIUM
     Indication: Eye pain
     Dosage: UNK, EYE DROP
     Route: 047
  11. DEXAMETHASONE [Suspect]
     Active Substance: DEXAMETHASONE
     Indication: Eye pain
     Dosage: UNK,EYE DROPS
     Route: 047
  12. CELECOXIB [Interacting]
     Active Substance: CELECOXIB
     Indication: Arthritis
     Dosage: 400 MILLIGRAM, QD (400 MILLIGRAM, QD)
     Route: 065
  13. CELECOXIB [Interacting]
     Active Substance: CELECOXIB
     Indication: Inflammation
  14. CIPROFLOXACIN [Interacting]
     Active Substance: CIPROFLOXACIN
     Indication: Arthritis
     Dosage: 1000 MILLIGRAM, QD (1000 MILLIGRAM, 1 DAY (QD)
     Route: 048
  15. CIPROFLOXACIN [Interacting]
     Active Substance: CIPROFLOXACIN
     Indication: Arthritis infective
     Dosage: 1000 MILLIGRAM, QD (1000 MILLIGRAM, 1 DAY (QD)
     Route: 048
  16. CIPROFLOXACIN [Interacting]
     Active Substance: CIPROFLOXACIN
     Indication: Inflammation
  17. ETORICOXIB [Interacting]
     Active Substance: ETORICOXIB
     Indication: Pain
     Dosage: UNK
     Route: 065
  18. ALPRAZOLAM [Interacting]
     Active Substance: ALPRAZOLAM
     Indication: Depression
     Dosage: 1 MILLIGRAM, QD (0.5 MILLIGRAM, BID)
     Route: 065
  19. PREGABALIN [Concomitant]
     Active Substance: PREGABALIN
     Indication: Pain
     Dosage: UNK
  20. CIPROFLOXACIN [Interacting]
     Active Substance: CIPROFLOXACIN
     Indication: Arthritis
     Dosage: 1000 MILLIGRAM, QD
     Route: 048
  21. CELECOXIB [Interacting]
     Active Substance: CELECOXIB
     Indication: Arthritis
     Dosage: 400 MILLIGRAM, QD

REACTIONS (15)
  - Hallucination, visual [Recovered/Resolved]
  - Eye irritation [Recovered/Resolved]
  - Drug interaction [Recovered/Resolved]
  - Drug level increased [Recovered/Resolved]
  - Visual field defect [Recovered/Resolved]
  - Headache [Unknown]
  - Eye pain [Recovered/Resolved]
  - Hyperhidrosis [Recovered/Resolved]
  - Drug ineffective [Recovered/Resolved]
  - Excessive eye blinking [Unknown]
  - Thermal burns of eye [Recovered/Resolved]
  - Dyschromatopsia [Recovered/Resolved]
  - Visual impairment [Recovered/Resolved]
  - Vitreous floaters [Recovered/Resolved]
  - Contraindicated product administered [Recovered/Resolved]
